FAERS Safety Report 11629900 (Version 1)
Quarter: 2015Q4

REPORT INFORMATION
  Report Type: Spontaneous
  Country: DE (occurrence: DE)
  Receive Date: 20151014
  Receipt Date: 20151014
  Transmission Date: 20160304
  Serious: Yes (Hospitalization)
  Sender: FDA-Public Use
  Company Number: DE-B.I. PHARMACEUTICALS,INC./RIDGEFIELD-2015-BI-37579DE

PATIENT
  Age: 42 Year
  Sex: Male

DRUGS (2)
  1. ALLOPURINOL. [Concomitant]
     Active Substance: ALLOPURINOL
     Indication: PRODUCT USED FOR UNKNOWN INDICATION
     Route: 065
  2. PRADAXA [Suspect]
     Active Substance: DABIGATRAN ETEXILATE MESYLATE
     Indication: ATRIAL FIBRILLATION
     Dosage: 300 MG
     Route: 048
     Dates: start: 2013, end: 20150529

REACTIONS (11)
  - Lymphadenopathy [Unknown]
  - Aspartate aminotransferase abnormal [Unknown]
  - Colitis [Recovered/Resolved]
  - Inflammatory marker increased [Unknown]
  - Alanine aminotransferase [Unknown]
  - Liver disorder [Recovered/Resolved]
  - Low density lipoprotein [Unknown]
  - Liver injury [Unknown]
  - Cholangitis [Unknown]
  - Hepatic steatosis [Unknown]
  - Liver function test abnormal [Unknown]

NARRATIVE: CASE EVENT DATE: 20150521
